FAERS Safety Report 15360789 (Version 1)
Quarter: 2018Q3

REPORT INFORMATION
  Report Type: Spontaneous
  Country: US (occurrence: US)
  Receive Date: 20180907
  Receipt Date: 20180907
  Transmission Date: 20181010
  Serious: Yes (Death, Hospitalization, Other)
  Sender: FDA-Public Use
  Company Number: US-LUPIN PHARMACEUTICALS INC.-2018-06218

PATIENT
  Age: 33 Year
  Sex: Female

DRUGS (3)
  1. ESCITALOPRAM [Suspect]
     Active Substance: ESCITALOPRAM OXALATE
     Indication: PRODUCT USED FOR UNKNOWN INDICATION
     Dosage: UNK
     Route: 065
  2. PROPRANOLOL [Suspect]
     Active Substance: PROPRANOLOL HYDROCHLORIDE
     Indication: PRODUCT USED FOR UNKNOWN INDICATION
     Dosage: UNK
     Route: 065
  3. LAMOTRIGINE. [Suspect]
     Active Substance: LAMOTRIGINE
     Indication: PRODUCT USED FOR UNKNOWN INDICATION
     Dosage: UNK
     Route: 065

REACTIONS (25)
  - Depressed level of consciousness [Fatal]
  - Toxicity to various agents [Fatal]
  - Hypotension [Fatal]
  - Respiratory depression [Fatal]
  - Thrombocytopenia [Fatal]
  - Agitation [Fatal]
  - Seizure [Fatal]
  - Hypoglycaemia [Fatal]
  - Myocardial ischaemia [Fatal]
  - Delirium [Fatal]
  - Anion gap [Fatal]
  - Rhabdomyolysis [Fatal]
  - Bradycardia [Fatal]
  - Electrocardiogram QRS complex prolonged [Fatal]
  - Hyperthermia [Fatal]
  - Coma [Fatal]
  - Muscle rigidity [Fatal]
  - Hyperreflexia [Fatal]
  - Arrhythmia [Fatal]
  - Tremor [Fatal]
  - Tachycardia [Fatal]
  - Electrocardiogram QT prolonged [Fatal]
  - Atrioventricular block [Fatal]
  - Dystonia [Fatal]
  - Metabolic acidosis [Fatal]
